FAERS Safety Report 4300648-9 (Version None)
Quarter: 2004Q1

REPORT INFORMATION
  Report Type: 
  Country: None (occurrence: None)
  Receive Date: 20040218
  Receipt Date: 20040210
  Transmission Date: 20041129
  Serious: Yes (Hospitalization)
  Sender: FDA-Public Use
  Company Number: 2004196364JP

PATIENT
  Age: 74 Year
  Sex: Female
  Weight: 45 kg

DRUGS (7)
  1. CABERGOLINE [Suspect]
     Indication: PARKINSON'S DISEASE
     Dosage: 1 MG/DAY, ORAL
     Route: 048
     Dates: start: 20000101
  2. MENESIT [Concomitant]
  3. MECOBALAMIN (MECOBALAMIN) [Concomitant]
  4. ASPIRIN [Concomitant]
  5. PRAVASTATIN [Concomitant]
  6. ALFAROL (ALFACALCIDOL) [Concomitant]
  7. BUP-4 (PROPIVERINE HYDROCHLORIDE) [Concomitant]

REACTIONS (3)
  - HEAD LAG [None]
  - MUSCULAR WEAKNESS [None]
  - POSTURE ABNORMAL [None]
